FAERS Safety Report 9260587 (Version 1)
Quarter: 2013Q2

REPORT INFORMATION
  Report Type: Report from Study
  Country: US (occurrence: US)
  Receive Date: 20130426
  Receipt Date: 20130426
  Transmission Date: 20140414
  Serious: Yes (Other)
  Sender: FDA-Public Use
  Company Number: US-RB-011907-10

PATIENT
  Age: 52 Year
  Sex: Female

DRUGS (1)
  1. SUBOXONE TABLET [Suspect]
     Indication: DRUG DEPENDENCE
     Route: 060
     Dates: start: 2009, end: 201011

REACTIONS (8)
  - Balance disorder [Not Recovered/Not Resolved]
  - Allergy to chemicals [Recovered/Resolved]
  - Urticaria [Recovered/Resolved]
  - Rash generalised [Recovered/Resolved]
  - Dyspnoea [Recovered/Resolved]
  - Vertigo [Recovered/Resolved]
  - Sinus bradycardia [Not Recovered/Not Resolved]
  - Loss of consciousness [Recovered/Resolved]
